FAERS Safety Report 22024306 (Version 1)
Quarter: 2023Q1

REPORT INFORMATION
  Report Type: Spontaneous
  Country: US (occurrence: None)
  Receive Date: 20230223
  Receipt Date: 20230223
  Transmission Date: 20230418
  Serious: No
  Sender: FDA-Public Use
  Company Number: US-ROCHE-3068995

PATIENT
  Sex: Female

DRUGS (2)
  1. XOLAIR [Suspect]
     Active Substance: OMALIZUMAB
     Indication: Product used for unknown indication
     Dosage: YES
     Route: 065
     Dates: start: 2021
  2. PREGABALIN [Concomitant]
     Active Substance: PREGABALIN

REACTIONS (4)
  - Contusion [Unknown]
  - Skin discolouration [Unknown]
  - Pain [Unknown]
  - Needle issue [Unknown]

NARRATIVE: CASE EVENT DATE: 20210101
